FAERS Safety Report 9005988 (Version 1)
Quarter: 2013Q1

REPORT INFORMATION
  Report Type: Report from Study
  Country: US (occurrence: US)
  Receive Date: 20130109
  Receipt Date: 20130109
  Transmission Date: 20140127
  Serious: Yes (Hospitalization)
  Sender: FDA-Public Use
  Company Number: US-009507513-1301USA000616

PATIENT
  Age: 62 Year
  Sex: Female
  Weight: 92 kg

DRUGS (16)
  1. LOSARTAN POTASSIUM TABLETS [Suspect]
     Indication: HYPERTENSION
     Dosage: 100 MG, QD
     Route: 048
     Dates: start: 201103
  2. TORSEMIDE [Suspect]
     Indication: HYPERTENSION
     Dosage: 20 MG, QD
     Route: 048
     Dates: start: 201006
  3. TORSEMIDE [Suspect]
     Dosage: 40 MG, BID
     Route: 048
     Dates: start: 20120226, end: 20120303
  4. TEKTURNA [Suspect]
     Indication: HYPERTENSION
     Dosage: 150 MG, QD
     Route: 048
     Dates: start: 2009
  5. CLONIDINE [Concomitant]
     Indication: HYPERTENSION
     Dosage: 0.2 MG, TID
     Route: 048
     Dates: start: 201101
  6. ERGOCALCIFEROL [Concomitant]
     Indication: PROPHYLAXIS
     Dosage: 1666.666 UT, QM
     Route: 048
     Dates: start: 201101
  7. TYLENOL EXTRA STRENGTH [Concomitant]
     Indication: ARTHRALGIA
     Dosage: UNK, PRN
     Route: 048
     Dates: start: 2006
  8. CALCITROL [Concomitant]
     Indication: PROPHYLAXIS
     Dosage: 0.5 MICROGRAM, TIW
     Route: 048
     Dates: start: 201106
  9. PREDNISONE [Concomitant]
     Indication: GOUT
     Dosage: UNK, PRN
     Route: 048
     Dates: start: 20110808
  10. NOVOLOG [Concomitant]
     Indication: TYPE 2 DIABETES MELLITUS
     Dosage: 30 IU WITH MEALS, UNK
     Route: 058
     Dates: start: 2010
  11. LANTUS [Concomitant]
     Indication: TYPE 2 DIABETES MELLITUS
     Dosage: 20 IU, QAM
     Route: 058
     Dates: start: 201006
  12. LANTUS [Concomitant]
     Dosage: 30 IU, QPM
     Route: 058
     Dates: start: 201006
  13. OMEGA-3 MARINE TRIGLYCERIDES [Concomitant]
     Indication: PROPHYLAXIS
     Dosage: 50 IU, QD
     Route: 048
     Dates: start: 2000
  14. VITAMINS (UNSPECIFIED) [Concomitant]
     Indication: PROPHYLAXIS
     Dosage: 1 DF, QD
     Route: 048
     Dates: start: 2000
  15. COLCHICINE [Concomitant]
     Indication: GOUT
     Dosage: 0.6 MG, QD
     Route: 048
     Dates: start: 20111206
  16. MAGNESIUM OXIDE [Concomitant]
     Indication: HYPOMAGNESAEMIA
     Dosage: 1500 MG, TID
     Route: 048
     Dates: start: 20120301

REACTIONS (1)
  - Gout [Recovered/Resolved]
